FAERS Safety Report 20297882 (Version 2)
Quarter: 2022Q1

REPORT INFORMATION
  Report Type: Report from Study
  Country: EG (occurrence: EG)
  Receive Date: 20220105
  Receipt Date: 20220322
  Transmission Date: 20220423
  Serious: Yes (Other)
  Sender: FDA-Public Use
  Company Number: EG-NOVARTISPH-NVSC2022EG000442

PATIENT
  Age: 6 Year
  Sex: Female

DRUGS (7)
  1. OMNITROPE [Suspect]
     Active Substance: SOMATROPIN
     Indication: Growth hormone deficiency
     Dosage: 0.4 MG, QD
     Route: 058
     Dates: start: 201908
  2. IRON [Suspect]
     Active Substance: IRON
     Indication: Supplementation therapy
     Dosage: UNK UNK, QD (3 OR 5 C.M)
     Route: 065
     Dates: start: 201908, end: 202012
  3. VIDROP [Concomitant]
     Indication: Supplementation therapy
     Dosage: UNK UNK, QD (1/2 DROPFILL)
     Route: 065
     Dates: start: 202012, end: 202109
  4. VIDROP [Concomitant]
     Dosage: UNK UNK, BIW (1/2 DROPFILL)
     Route: 065
     Dates: start: 202109
  5. ZINC [Concomitant]
     Active Substance: ZINC
     Indication: Supplementation therapy
     Dosage: UNK UNK, QD (3 C.M)
     Route: 065
     Dates: start: 202012, end: 202109
  6. ZINC [Concomitant]
     Active Substance: ZINC
     Dosage: UNK UNK, BIW (3 C.M)
     Route: 065
     Dates: start: 202109
  7. CALCIUM [Concomitant]
     Active Substance: CALCIUM
     Indication: Mineral supplementation
     Dosage: UNK
     Route: 065

REACTIONS (2)
  - Syncope [Recovered/Resolved]
  - Dizziness [Not Recovered/Not Resolved]

NARRATIVE: CASE EVENT DATE: 20201201
